FAERS Safety Report 23030367 (Version 1)
Quarter: 2023Q4

REPORT INFORMATION
  Report Type: Spontaneous
  Country: AU (occurrence: None)
  Receive Date: 20231005
  Receipt Date: 20231005
  Transmission Date: 20240110
  Serious: Yes (Hospitalization, Other)
  Sender: FDA-Public Use
  Company Number: AU-INFO-20230174

PATIENT
  Age: 33 Year
  Sex: Female

DRUGS (9)
  1. PERINDOPRIL [Concomitant]
     Active Substance: PERINDOPRIL
     Dosage: ()
     Dates: end: 2017
  2. PREDNISOLONE [Concomitant]
     Active Substance: PREDNISOLONE
     Indication: Systemic lupus erythematosus
  3. AZATHIOPRINE [Concomitant]
     Active Substance: AZATHIOPRINE
     Indication: Systemic lupus erythematosus
     Dates: end: 2017
  4. CEPHALEXIN [Suspect]
     Active Substance: CEPHALEXIN
     Indication: Systemic lupus erythematosus
     Dates: end: 2017
  5. GENTAMICIN [Suspect]
     Active Substance: GENTAMICIN
     Indication: Systemic lupus erythematosus
     Dates: end: 2017
  6. METRONIDAZOLE [Suspect]
     Active Substance: METRONIDAZOLE
     Indication: Appendicitis perforated
     Dates: end: 2017
  7. HYDROXYCHLOROQUINE [Concomitant]
     Active Substance: HYDROXYCHLOROQUINE
     Indication: Systemic lupus erythematosus
     Dates: end: 2017
  8. AMOXICILLIN [Suspect]
     Active Substance: AMOXICILLIN
     Indication: Systemic lupus erythematosus
     Dates: end: 2017
  9. CIPROFLOXACIN [Suspect]
     Active Substance: CIPROFLOXACIN
     Indication: Appendicitis perforated
     Dates: end: 2017

REACTIONS (1)
  - Renal tubular necrosis [Unknown]

NARRATIVE: CASE EVENT DATE: 20170101
